FAERS Safety Report 18481052 (Version 1)
Quarter: 2020Q4

REPORT INFORMATION
  Report Type: Spontaneous
  Country: US (occurrence: US)
  Receive Date: 20201109
  Receipt Date: 20201109
  Transmission Date: 20210114
  Serious: No
  Sender: FDA-Public Use
  Company Number: US-EMD SERONO-9180464

PATIENT
  Age: 24 Year
  Sex: Female

DRUGS (1)
  1. REBIF [Suspect]
     Active Substance: INTERFERON BETA-1A
     Indication: MULTIPLE SCLEROSIS
     Route: 058
     Dates: start: 20200624

REACTIONS (7)
  - Injection site swelling [Unknown]
  - Somnolence [Unknown]
  - Depression [Unknown]
  - Influenza like illness [Unknown]
  - Injection site bruising [Unknown]
  - Hangover [Unknown]
  - Injection site erythema [Unknown]

NARRATIVE: CASE EVENT DATE: 2020
